FAERS Safety Report 17451651 (Version 2)
Quarter: 2020Q1

REPORT INFORMATION
  Report Type: Spontaneous
  Country: US (occurrence: US)
  Receive Date: 20200224
  Receipt Date: 20200226
  Transmission Date: 20200409
  Serious: No
  Sender: FDA-Public Use
  Company Number: US-PFIZER INC-2020080673

PATIENT
  Age: 84 Year
  Sex: Female
  Weight: 56.7 kg

DRUGS (3)
  1. AMLODIPINE BESILATE [Suspect]
     Active Substance: AMLODIPINE BESYLATE
     Dosage: UNK
  2. SYNTHROID [Concomitant]
     Active Substance: LEVOTHYROXINE SODIUM
     Indication: THYROID DISORDER
     Dosage: 75 UG, 1X/DAY (75 MCG, PILL, ORALLY, IN THE MORNING WHEN I GET UP)
     Route: 048
  3. RHOPRESSA [Concomitant]
     Active Substance: NETARSUDIL MESYLATE
     Indication: GLAUCOMA
     Dosage: 2.5 ML, UNK (2.5 ML, EYE DROPS, BEFORE GOING TO BED)

REACTIONS (2)
  - Dizziness [Unknown]
  - Malaise [Unknown]
